FAERS Safety Report 9279650 (Version 3)
Quarter: 2013Q3

REPORT INFORMATION
  Report Type: Spontaneous
  Country: US (occurrence: US)
  Receive Date: 20130509
  Receipt Date: 20130820
  Transmission Date: 20140515
  Serious: Yes (Hospitalization)
  Sender: FDA-Public Use
  Company Number: US-BIOGENIDEC-2013BI041099

PATIENT
  Age: 53 Year
  Sex: Female

DRUGS (1)
  1. TYSABRI [Suspect]
     Indication: MULTIPLE SCLEROSIS
     Route: 042
     Dates: start: 20120612

REACTIONS (5)
  - Diabetes mellitus [Not Recovered/Not Resolved]
  - General symptom [Unknown]
  - Neck surgery [Recovered/Resolved]
  - Surgery [Recovered/Resolved]
  - Aphasia [Recovered/Resolved]
